FAERS Safety Report 5634784-1 (Version None)
Quarter: 2008Q1

REPORT INFORMATION
  Report Type: 
  Country: None (occurrence: None)
  Receive Date: 20080131
  Receipt Date: 20071005
  Transmission Date: 20080703
  Serious: Yes (Other)
  Sender: FDA-Public Use
  Company Number: PHEH2007US07060

PATIENT
  Age: 75 Year
  Sex: Female
  Weight: 63.9 kg

DRUGS (13)
  1. TEKTURNA [Suspect]
     Indication: HYPERTENSION
     Dosage: 150 MG/DAY; 300 MG, QD
     Dates: end: 20070503
  2. TEKTURNA [Suspect]
     Indication: HYPERTENSION
     Dosage: 150 MG/DAY; 300 MG, QD
     Dates: start: 20070418
  3. DIOVAN HCT [Concomitant]
  4. INSULIN (INSULIN) [Concomitant]
  5. TOPROL-XL [Concomitant]
  6. VYTORIN [Concomitant]
  7. DYNACIRC [Concomitant]
  8. URSODIOL (URSODEOXYCHOLIC ACID) [Concomitant]
  9. ACETYLSALICYLIC ACID SRT [Concomitant]
  10. ATIVAN [Concomitant]
  11. CALCIUM (CALCIUM) [Concomitant]
  12. MULTIVITAMINS (ASCORBIC ACID, ERGOCALCIFEROL, FOLIC ACID, NICOTINAMIDE [Concomitant]
  13. HYDRALAZINE HCL [Concomitant]

REACTIONS (4)
  - DIZZINESS [None]
  - DRUG INEFFECTIVE [None]
  - HEADACHE [None]
  - HYPERTENSION [None]
